FAERS Safety Report 15182944 (Version 1)
Quarter: 2018Q3

REPORT INFORMATION
  Report Type: Spontaneous
  Country: IT (occurrence: IT)
  Receive Date: 20180723
  Receipt Date: 20180723
  Transmission Date: 20181010
  Serious: Yes (Other)
  Sender: FDA-Public Use
  Company Number: IT-VIIV HEALTHCARE LIMITED-IT2018GSK129107

PATIENT
  Age: 58 Year
  Sex: Male

DRUGS (1)
  1. TRIUMEQ [Suspect]
     Active Substance: ABACAVIR SULFATE\DOLUTEGRAVIR SODIUM\LAMIVUDINE
     Indication: HIV INFECTION
     Dosage: UNK
     Dates: start: 20160520, end: 2017

REACTIONS (13)
  - Drug-induced liver injury [Recovered/Resolved]
  - Abdominal pain [Recovered/Resolved]
  - Lethargy [Recovered/Resolved]
  - Oedema due to hepatic disease [Recovered/Resolved]
  - Hepatic necrosis [Recovered/Resolved]
  - Acute kidney injury [Recovered/Resolved]
  - Loss of personal independence in daily activities [Recovered/Resolved]
  - Vomiting [Recovered/Resolved]
  - Hepatitis cholestatic [Recovered/Resolved]
  - Pyrexia [Recovered/Resolved]
  - Jaundice [Recovered/Resolved]
  - Periportal oedema [Recovered/Resolved]
  - Rash [Recovered/Resolved]

NARRATIVE: CASE EVENT DATE: 2016
